FAERS Safety Report 4761699-3 (Version None)
Quarter: 2005Q3

REPORT INFORMATION
  Report Type: 
  Country: None (occurrence: None)
  Receive Date: 20050906
  Receipt Date: 20050823
  Transmission Date: 20060218
  Serious: Yes (Life-Threatening, Hospitalization)
  Sender: FDA-Public Use
  Company Number: US-JNJFOC-20050705989

PATIENT
  Sex: Male
  Weight: 83.92 kg

DRUGS (2)
  1. TOPAMAX [Suspect]
     Indication: EPILEPSY
     Dosage: TAKEN AS 125 MG IN THE AM AND 450 MG IN THE PM FOR APPROX. 6 MONTHS+
     Route: 048
  2. TOPAMAX [Suspect]
     Indication: COMPLEX PARTIAL SEIZURES
     Dosage: (200 MG DAILY IN AM, AND 400 MG DAILY IN PM)
     Route: 048

REACTIONS (17)
  - BLOOD CREATINE PHOSPHOKINASE MB INCREASED [None]
  - BRAIN OEDEMA [None]
  - CARDIOMYOPATHY [None]
  - COMA [None]
  - DISSEMINATED INTRAVASCULAR COAGULATION [None]
  - ELECTROCARDIOGRAM ST SEGMENT ELEVATION [None]
  - HEART RATE INCREASED [None]
  - HEPATIC FAILURE [None]
  - HYPERTHERMIA [None]
  - LUNG INFILTRATION [None]
  - MITRAL VALVE INCOMPETENCE [None]
  - MULTI-ORGAN FAILURE [None]
  - PLEURAL EFFUSION [None]
  - RENAL FAILURE ACUTE [None]
  - RESPIRATORY FAILURE [None]
  - THROMBOCYTOPENIA [None]
  - TROPONIN INCREASED [None]
